FAERS Safety Report 6250887-5 (Version None)
Quarter: 2009Q2

REPORT INFORMATION
  Report Type: 
  Country: None (occurrence: None)
  Receive Date: 20090630
  Receipt Date: 20090507
  Transmission Date: 20091009
  Serious: No
  Sender: FDA-Public Use
  Company Number: US-BAUSCH-2009BL002171

PATIENT
  Age: 28 Year
  Sex: Male
  Weight: 102 kg

DRUGS (3)
  1. ALAWAY [Suspect]
     Indication: EYE PRURITUS
     Route: 047
     Dates: start: 20090506, end: 20090506
  2. ALAWAY [Suspect]
     Route: 047
     Dates: start: 20090507
  3. ALLEGRA [Concomitant]
     Indication: SEASONAL ALLERGY
     Route: 048
     Dates: start: 20090506, end: 20090506

REACTIONS (1)
  - INSTILLATION SITE IRRITATION [None]
